FAERS Safety Report 5319682-5 (Version None)
Quarter: 2007Q2

REPORT INFORMATION
  Report Type: 
  Country: None (occurrence: None)
  Receive Date: 20070502
  Receipt Date: 20070416
  Transmission Date: 20071010
  Serious: Yes (Hospitalization)
  Sender: FDA-Public Use
  Company Number: 2007JP000979

PATIENT
  Age: 77 Year
  Sex: Male
  Weight: 43 kg

DRUGS (7)
  1. VESICARE [Suspect]
     Indication: HYPERTONIC BLADDER
     Dosage: 5 MG, UID/QD,ORAL, 5 MG, BID, ORAL
     Route: 048
     Dates: start: 20061216, end: 20070105
  2. VESICARE [Suspect]
     Indication: HYPERTONIC BLADDER
     Dosage: 5 MG, UID/QD,ORAL, 5 MG, BID, ORAL
     Route: 048
     Dates: start: 20070106, end: 20070224
  3. HARNAL (TAMSULOSIN) ORODISPERSABLE CR TABLET [Concomitant]
  4. MICARDIS [Concomitant]
  5. MUCOSTA (REBAMIPIDE) TABLET [Concomitant]
  6. EXCELASE (ENZYMES NOS) TABLET [Concomitant]
  7. DIOVAN (VALSARTAN) TABLET 40 MG [Concomitant]

REACTIONS (10)
  - BLOOD CHOLINESTERASE DECREASED [None]
  - COGWHEEL RIGIDITY [None]
  - HYPOXIA [None]
  - ILL-DEFINED DISORDER [None]
  - LUNG DISORDER [None]
  - MOVEMENT DISORDER [None]
  - OCULOGYRATION [None]
  - PNEUMONIA [None]
  - TREMOR [None]
  - URINARY RETENTION [None]
